FAERS Safety Report 15236249 (Version 1)
Quarter: 2018Q3

REPORT INFORMATION
  Report Type: Spontaneous
  Country: US (occurrence: US)
  Receive Date: 20180803
  Receipt Date: 20180803
  Transmission Date: 20181010
  Serious: No
  Sender: FDA-Public Use
  Company Number: US-GALDERMA-US18011899

PATIENT
  Age: 32 Year
  Sex: Female

DRUGS (5)
  1. PROACTIV GREEN TEA MOISTURIZER [Concomitant]
     Active Substance: COSMETICS
     Route: 061
     Dates: start: 20180206, end: 20180210
  2. PROACTIV MD DEEP CLEANSING FACE WASH [Concomitant]
     Active Substance: COSMETICS
     Route: 061
     Dates: start: 20180206, end: 20180210
  3. PROACTIV MD ADAPALENE ACNE TREATMENT [Suspect]
     Active Substance: ADAPALENE
     Dosage: 0.1%
     Route: 061
     Dates: start: 20180206, end: 20180210
  4. PROACTIV MD DAILY OIL CONTROL SPF 30 [Suspect]
     Active Substance: AVOBENZONE\OCTISALATE\OCTOCRYLENE
     Route: 061
     Dates: start: 20180206, end: 20180210
  5. PROACTIV SOLUTION BLACKHEAD DISSOLVING [Concomitant]
     Active Substance: SALICYLIC ACID
     Route: 061
     Dates: start: 20180206, end: 20180210

REACTIONS (4)
  - Rash erythematous [Not Recovered/Not Resolved]
  - Skin burning sensation [Not Recovered/Not Resolved]
  - Rash [Not Recovered/Not Resolved]
  - Product used for unknown indication [Recovered/Resolved]

NARRATIVE: CASE EVENT DATE: 20180206
